FAERS Safety Report 7067388-7 (Version None)
Quarter: 2010Q4

REPORT INFORMATION
  Report Type: 
  Country: None (occurrence: None)
  Receive Date: 20101028
  Receipt Date: 20101022
  Transmission Date: 20110411
  Serious: Yes (Hospitalization)
  Sender: FDA-Public Use
  Company Number: AU-RB-017161-10

PATIENT

DRUGS (2)
  1. SUBOXONE TABLETS [Suspect]
     Indication: PRODUCT USED FOR UNKNOWN INDICATION
     Dosage: DOSING DETAILS UNKNOWN
     Route: 065
  2. SUBOXONE FILM [Suspect]
     Indication: PRODUCT USED FOR UNKNOWN INDICATION
     Dosage: DOSING DETAILS UNKNOWN
     Route: 065

REACTIONS (4)
  - CARDIAC DISORDER [None]
  - PULMONARY OEDEMA [None]
  - RENAL FAILURE [None]
  - SEPTIC SHOCK [None]
